FAERS Safety Report 9402900 (Version 1)
Quarter: 2013Q3

REPORT INFORMATION
  Report Type: Spontaneous
  Country: IT (occurrence: IT)
  Receive Date: 20130716
  Receipt Date: 20130716
  Transmission Date: 20140515
  Serious: Yes (Other)
  Sender: FDA-Public Use
  Company Number: IT-TEVA-418384ISR

PATIENT
  Age: 63 Year
  Sex: 0
  Weight: 47 kg

DRUGS (7)
  1. FLUOROURACILE TEVA [Suspect]
     Indication: COLON CANCER
     Dosage: 435 MG CYCLICAL
     Route: 042
     Dates: start: 20130206, end: 20130306
  2. FLUOROURACILE TEVA [Suspect]
     Dosage: 652,5 MG CYCLICAL
     Route: 041
     Dates: start: 20130206, end: 20130306
  3. OXALIPLATINO HOSPIRA [Suspect]
     Indication: COLON CANCER
     Dosage: 92,44 MG CYCLICAL
     Route: 042
     Dates: start: 20130206, end: 20130306
  4. RANIDIL [Concomitant]
     Dosage: 50 MILLIGRAM DAILY;
     Route: 042
     Dates: start: 20130206, end: 20130306
  5. ONDANSETRONE HIKMA [Concomitant]
     Dosage: 8 MILLIGRAM DAILY;
     Route: 042
     Dates: start: 20130206, end: 20130306
  6. SOLDESAM [Concomitant]
     Dosage: 8 MILLIGRAM DAILY;
     Route: 042
     Dates: start: 20130206, end: 20130306
  7. LEVOFOLENE [Concomitant]
     Dosage: 108.8 MILLIGRAM DAILY;
     Route: 042
     Dates: start: 20130206, end: 20130306

REACTIONS (6)
  - Constipation [Unknown]
  - Fatigue [Unknown]
  - Formication [Unknown]
  - Abdominal pain [Unknown]
  - Arthralgia [Unknown]
  - Decreased appetite [Unknown]
